FAERS Safety Report 7410668-3 (Version None)
Quarter: 2011Q1

REPORT INFORMATION
  Report Type: 
  Country: None (occurrence: None)
  Receive Date: 20110302
  Receipt Date: 20110119
  Transmission Date: 20110831
  Serious: No
  Sender: FDA-Public Use
  Company Number: 025835

PATIENT
  Sex: Female
  Weight: 63.5 kg

DRUGS (5)
  1. COLESTID [Concomitant]
  2. CIMZIA [Suspect]
     Indication: CROHN'S DISEASE
     Dosage: 400 MG 1X/MONTH SUBCUTANEOUS
     Route: 058
     Dates: start: 20101015
  3. FLEXERIL [Concomitant]
  4. DIPHENOXYLATE [Concomitant]
  5. IZOFRAN [Concomitant]

REACTIONS (3)
  - DIARRHOEA [None]
  - INJECTION SITE SWELLING [None]
  - MALAISE [None]
